FAERS Safety Report 7521011-3 (Version None)
Quarter: 2011Q2

REPORT INFORMATION
  Report Type: 
  Country: None (occurrence: None)
  Receive Date: 20110603
  Receipt Date: 20101116
  Transmission Date: 20111010
  Serious: No
  Sender: FDA-Public Use
  Company Number: US-BAYER-2010-001300

PATIENT
  Age: 52 Year
  Sex: Male

DRUGS (1)
  1. MAGNEVIST [Suspect]
     Dosage: 20
     Route: 042
     Dates: start: 20101116, end: 20101116

REACTIONS (3)
  - CHEST DISCOMFORT [None]
  - DYSGEUSIA [None]
  - OROPHARYNGEAL DISCOMFORT [None]
